FAERS Safety Report 4686331-9 (Version None)
Quarter: 2005Q2

REPORT INFORMATION
  Report Type: 
  Country: None (occurrence: None)
  Receive Date: 20050606
  Receipt Date: 20050531
  Transmission Date: 20051028
  Serious: Yes (Life-Threatening, Other)
  Sender: FDA-Public Use
  Company Number: 2005081977

PATIENT
  Age: 58 Year
  Sex: Male
  Weight: 40 kg

DRUGS (15)
  1. LINEZOLID SOLUTION, STERILE       (LINEZOLID) [Suspect]
     Indication: CATHETER RELATED INFECTION
     Dosage: 1200 MG (600 MG, 2 IN 1 D), INTRAVENOUS
     Route: 042
     Dates: start: 20050530, end: 20050531
  2. METOPROLOL TARTRATE [Concomitant]
  3. CEFOTAXIME SODIUM [Concomitant]
  4. AMIKACIN [Concomitant]
  5. METRONIDAZOLE [Concomitant]
  6. CEFOPERAZONE SODIUM [Concomitant]
  7. SULBACTAM SODIUM (SULBACTAM) [Concomitant]
  8. PANTOPRAZOLE SODIUM [Concomitant]
  9. DIAZEPAM [Concomitant]
  10. RANITIDINE HCL [Concomitant]
  11. TRAMADOL HCL [Concomitant]
  12. MORPHINE [Concomitant]
  13. THIOPENTONE SODIUM (THIOPENTAL SODIUM) [Concomitant]
  14. VECURONIUM BROMIDE [Concomitant]
  15. ISOFLURANE [Concomitant]

REACTIONS (6)
  - BLOOD PRESSURE INCREASED [None]
  - BRONCHOSPASM [None]
  - HEART RATE INCREASED [None]
  - LIP DISORDER [None]
  - ORAL DISCOMFORT [None]
  - RESPIRATORY RATE INCREASED [None]
